FAERS Safety Report 19077423 (Version 1)
Quarter: 2021Q1

REPORT INFORMATION
  Report Type: Spontaneous
  Country: US (occurrence: US)
  Receive Date: 20210331
  Receipt Date: 20210331
  Transmission Date: 20210420
  Serious: Yes (Life-Threatening, Hospitalization, Disabling)
  Sender: FDA-Public Use
  Company Number: None

PATIENT
  Age: 55 Year
  Sex: Female
  Weight: 94.5 kg

DRUGS (21)
  1. HYDROXYZINE [Concomitant]
     Active Substance: HYDROXYZINE HYDROCHLORIDE
  2. LEVOCETIRIZINE [Concomitant]
     Active Substance: LEVOCETIRIZINE
  3. TUMERIC [Concomitant]
     Active Substance: HERBALS\TURMERIC
  4. FLUTICASONE/SALMETEROL INHALER [Concomitant]
     Active Substance: ALBUTEROL SULFATE\FLUTICASONE PROPIONATE
  5. PILOCARPINE. [Concomitant]
     Active Substance: PILOCARPINE
  6. VITAMIN D [Concomitant]
     Active Substance: VITAMIN D NOS
  7. CBD SUPPLEMENTS [Concomitant]
  8. HYDROXYCHLOROQUINE [Concomitant]
     Active Substance: HYDROXYCHLOROQUINE
  9. HYOSCYAMINE. [Concomitant]
     Active Substance: HYOSCYAMINE
  10. VITAMIN C [Concomitant]
     Active Substance: ASCORBIC ACID
  11. INFLIXIMAB [Suspect]
     Active Substance: INFLIXIMAB
     Indication: SYSTEMIC LUPUS ERYTHEMATOSUS
     Dosage: ?          OTHER FREQUENCY:4 INFUSIONS;?
     Route: 042
     Dates: start: 20190117, end: 20190412
  12. NALTREXONE LOW DOSE [Concomitant]
  13. DICYCLOMINE [Concomitant]
     Active Substance: DICYCLOMINE HYDROCHLORIDE
  14. PROBIOTICS [Concomitant]
     Active Substance: PROBIOTICS NOS
  15. ALBUTEROL INHALER [Concomitant]
     Active Substance: ALBUTEROL
  16. CETIRIZINE [Concomitant]
     Active Substance: CETIRIZINE HYDROCHLORIDE
  17. ROSUVASTATIN. [Concomitant]
     Active Substance: ROSUVASTATIN
  18. OMEPRAZOLE. [Concomitant]
     Active Substance: OMEPRAZOLE
  19. GABAPENTIN. [Concomitant]
     Active Substance: GABAPENTIN
  20. MONTELUKAST [Concomitant]
     Active Substance: MONTELUKAST SODIUM
  21. METAMUCIL [Concomitant]
     Active Substance: PLANTAGO SEED

REACTIONS (10)
  - Tachycardia [None]
  - Anaphylactic reaction [None]
  - Muscle spasms [None]
  - Blood pressure decreased [None]
  - Blood pressure increased [None]
  - Ligament pain [None]
  - Myalgia [None]
  - Arthralgia [None]
  - Crying [None]
  - Spinal pain [None]

NARRATIVE: CASE EVENT DATE: 20190412
